FAERS Safety Report 10227186 (Version 6)
Quarter: 2014Q4

REPORT INFORMATION
  Report Type: Report from Study
  Country: JP (occurrence: None)
  Receive Date: 20140606
  Receipt Date: 20141010
  Transmission Date: 20150528
  Serious: Yes (Death, Other)
  Sender: FDA-Public Use
  Company Number: 2014MPI00649

PATIENT
  Age: 29 Year
  Sex: Female
  Weight: 52 kg

DRUGS (4)
  1. GRANULOCYTE COLONY-STIMULATING FACTOR NOS [Concomitant]
     Active Substance: GRANULOCYTE COLONY-STIMULATING FACTOR NOS
  2. ADCETRIS [Suspect]
     Active Substance: BRENTUXIMAB VEDOTIN
     Indication: HODGKIN^S DISEASE
     Dosage: 1.8MG/KG, Q21D. IV DRIP
     Route: 041
     Dates: start: 20140418
  3. ADCETRIS [Suspect]
     Active Substance: BRENTUXIMAB VEDOTIN
     Indication: HODGKIN^S DISEASE NODULAR SCLEROSIS
     Dosage: 1.8MG/KG, Q21D. IV DRIP
     Route: 041
     Dates: start: 20140418
  4. ADCETRIS [Suspect]
     Active Substance: BRENTUXIMAB VEDOTIN
     Dosage: 1.8MG/KG, Q21D. IV DRIP
     Route: 041
     Dates: start: 20140418

REACTIONS (15)
  - Aspiration [None]
  - Tumour necrosis [None]
  - Therapeutic response decreased [None]
  - Respiratory failure [None]
  - Malignant neoplasm progression [None]
  - Pneumonia [None]
  - Neutrophil count decreased [None]
  - Interstitial lung disease [None]
  - White blood cell count decreased [None]
  - Respiratory disorder [None]
  - Tumour lysis syndrome [None]
  - Pulmonary mass [None]
  - Infection [None]
  - No therapeutic response [None]
  - Neutropenia [None]

NARRATIVE: CASE EVENT DATE: 20140414
